FAERS Safety Report 17818366 (Version 2)
Quarter: 2021Q1

REPORT INFORMATION
  Report Type: Report from Study
  Country: US (occurrence: US)
  Receive Date: 20200522
  Receipt Date: 20210217
  Transmission Date: 20210419
  Serious: No
  Sender: FDA-Public Use
  Company Number: NVSC2020US139565

PATIENT
  Age: 72 Year
  Sex: Female

DRUGS (1)
  1. XIIDRA [Suspect]
     Active Substance: LIFITEGRAST
     Indication: DRY EYE
     Dosage: 5 ML, BID (SAMPLE RECIEVED FROM PRESCRIBING DOCTOR)
     Route: 047
     Dates: start: 20200505

REACTIONS (3)
  - Eye irritation [Not Recovered/Not Resolved]
  - Somnolence [Unknown]
  - Vision blurred [Not Recovered/Not Resolved]

NARRATIVE: CASE EVENT DATE: 20200505
